FAERS Safety Report 5724078-8 (Version None)
Quarter: 2008Q2

REPORT INFORMATION
  Report Type: 
  Country: None (occurrence: None)
  Receive Date: 20080430
  Receipt Date: 20080404
  Transmission Date: 20081010
  Serious: No
  Sender: FDA-Public Use
  Company Number: US-BOEHRINGER INGELHEIM GMBH, GERMANY-2008-BP-05435BP

PATIENT
  Sex: Male

DRUGS (6)
  1. SPIRIVA [Suspect]
     Indication: EMPHYSEMA
     Route: 055
     Dates: start: 20071101
  2. SPIRIVA [Suspect]
     Indication: DYSPNOEA
  3. KEFLEX [Suspect]
     Indication: INFECTION
  4. ADVAIR HFA [Concomitant]
  5. VERAMYST [Concomitant]
  6. INSULIN [Concomitant]

REACTIONS (5)
  - DYSPNOEA [None]
  - INFECTION [None]
  - LACERATION [None]
  - RASH ERYTHEMATOUS [None]
  - RASH PRURITIC [None]
